FAERS Safety Report 8376452-1 (Version None)
Quarter: 2012Q2

REPORT INFORMATION
  Report Type: 
  Country: None (occurrence: None)
  Receive Date: 20120522
  Receipt Date: 20120229
  Transmission Date: 20120825
  Serious: No
  Sender: FDA-Public Use
  Company Number: US-MYLANLABS-2012S1004598

PATIENT
  Sex: Male

DRUGS (3)
  1. PREDNISONE [Concomitant]
  2. MYCOPHENOLATE MOFETIL [Suspect]
  3. TACROLIMUS [Concomitant]

REACTIONS (4)
  - TREMOR [None]
  - ARTHRALGIA [None]
  - PAIN [None]
  - FLUID RETENTION [None]
